FAERS Safety Report 4721850-8 (Version None)
Quarter: 2005Q3

REPORT INFORMATION
  Report Type: 
  Country: None (occurrence: None)
  Receive Date: 20050721
  Receipt Date: 20050509
  Transmission Date: 20060218
  Serious: No
  Sender: FDA-Public Use
  Company Number: US-BRISTOL-MYERS SQUIBB COMPANY-12961199

PATIENT
  Age: 70 Year
  Sex: Female
  Weight: 54 kg

DRUGS (18)
  1. COUMADIN [Suspect]
     Indication: ATRIAL FIBRILLATION
     Route: 048
     Dates: start: 20030901
  2. PARNATE [Concomitant]
  3. MOBIC [Concomitant]
  4. NEXIUM [Concomitant]
  5. EVISTA [Concomitant]
  6. DIGOXIN [Concomitant]
  7. NEURONTIN [Concomitant]
  8. LORAZEPAM [Concomitant]
  9. PREMARIN [Concomitant]
  10. ASCORBIC ACID [Concomitant]
  11. CALCIUM GLUCONATE [Concomitant]
  12. L-LYSINE [Concomitant]
  13. COLACE [Concomitant]
  14. HYDROCIL INSTANT [Concomitant]
  15. PREMARIN [Concomitant]
     Route: 067
  16. ATIVAN [Concomitant]
  17. METAMUCIL [Concomitant]
  18. MYCELEX [Concomitant]
     Dosage: ORAL LOZENGES
     Route: 048

REACTIONS (2)
  - HAIR TEXTURE ABNORMAL [None]
  - MALE PATTERN BALDNESS [None]
